FAERS Safety Report 7744450-4 (Version None)
Quarter: 2011Q3

REPORT INFORMATION
  Report Type: 
  Country: None (occurrence: None)
  Receive Date: 20110826
  Receipt Date: 20110817
  Transmission Date: 20111222
  Serious: Yes (Hospitalization, Other)
  Sender: FDA-Public Use
  Company Number: 2011SP039294

PATIENT
  Age: 31 Year
  Sex: Female

DRUGS (2)
  1. CHORIONIC GONADOTROPIN [Suspect]
     Indication: PRODUCT USED FOR UNKNOWN INDICATION
  2. HUMAN MENOPAUSAL GONADOTROPHIN [Concomitant]

REACTIONS (6)
  - CEREBRAL INFARCTION [None]
  - OVARIAN HYPERSTIMULATION SYNDROME [None]
  - URINE OUTPUT DECREASED [None]
  - RENAL INFARCT [None]
  - CEREBRAL ARTERY EMBOLISM [None]
  - GASTROINTESTINAL DISORDER [None]
